FAERS Safety Report 9027036 (Version 1)
Quarter: 2013Q1

REPORT INFORMATION
  Report Type: Spontaneous
  Country: SG (occurrence: SG)
  Receive Date: 20130123
  Receipt Date: 20130123
  Transmission Date: 20140127
  Serious: Yes (Death, Life-Threatening, Hospitalization, Other)
  Sender: FDA-Public Use
  Company Number: SG-JNJFOC-20130106836

PATIENT
  Sex: 0

DRUGS (3)
  1. PARACETAMOL [Suspect]
     Route: 065
  2. PARACETAMOL [Suspect]
     Indication: PRODUCT USED FOR UNKNOWN INDICATION
     Route: 065
  3. AN UNKNOWN MEDICATION [Suspect]
     Indication: PRODUCT USED FOR UNKNOWN INDICATION
     Route: 065

REACTIONS (8)
  - Accidental exposure to product [Fatal]
  - Intentional self-injury [Unknown]
  - Withdrawal syndrome [Unknown]
  - Intentional drug misuse [Unknown]
  - Drug abuse [Unknown]
  - Medication error [Unknown]
  - Overdose [Unknown]
  - Drug administration error [Unknown]
